FAERS Safety Report 5579148-4 (Version None)
Quarter: 2008Q1

REPORT INFORMATION
  Report Type: 
  Country: None (occurrence: None)
  Receive Date: 20080102
  Receipt Date: 20071221
  Transmission Date: 20080703
  Serious: Yes (Hospitalization, Other)
  Sender: FDA-Public Use
  Company Number: FR-ROCHE-538818

PATIENT
  Age: 17 Year
  Sex: Female

DRUGS (3)
  1. CELLCEPT [Suspect]
     Indication: WEGENER'S GRANULOMATOSIS
     Dosage: DOSAGE: 40 DOSE FORMS
     Route: 048
     Dates: start: 20061113, end: 20061113
  2. CELLCEPT [Suspect]
     Route: 048
  3. CELLCEPT [Suspect]
     Route: 048
     Dates: start: 20060201

REACTIONS (5)
  - ABDOMINAL PAIN [None]
  - DIARRHOEA [None]
  - OVERDOSE [None]
  - SUICIDE ATTEMPT [None]
  - VOMITING [None]
